FAERS Safety Report 6221159-X (Version None)
Quarter: 2009Q2

REPORT INFORMATION
  Report Type: 
  Country: None (occurrence: None)
  Receive Date: 20090610
  Receipt Date: 20090529
  Transmission Date: 20091009
  Serious: Yes (Hospitalization)
  Sender: FDA-Public Use
  Company Number: FR-PFIZER INC-2009220014

PATIENT
  Age: 75 Year

DRUGS (8)
  1. LYRICA [Suspect]
     Indication: NEURALGIA
     Dosage: UNK
     Route: 048
     Dates: start: 20080111, end: 20080122
  2. SEROPRAM [Suspect]
     Indication: DEPRESSION
     Dosage: 20 MG, 1X/DAY
     Route: 048
     Dates: start: 20080117, end: 20080122
  3. AERIUS [Suspect]
     Indication: PRURITUS
     Dosage: 5 MG, 1X/DAY
     Route: 048
     Dates: start: 20080114, end: 20080122
  4. ACTISKENAN [Suspect]
     Indication: PAIN
     Dosage: 5 MG, 4X/DAY
     Route: 048
     Dates: start: 20080111, end: 20080122
  5. XATRAL [Suspect]
     Indication: DYSURIA
     Dosage: 10 MG, 1X/DAY
     Route: 048
     Dates: start: 20071220
  6. OFLOXACIN [Suspect]
     Indication: SINUSITIS
     Dosage: UNK
     Dates: start: 20071231, end: 20080118
  7. AUGMENTIN [Suspect]
     Indication: SINUSITIS
     Dosage: UNK
     Dates: start: 20071231, end: 20080118
  8. FLUDEX [Concomitant]
     Indication: HYPERTENSION
     Dosage: 1.5 MG, UNK
     Route: 048
     Dates: start: 20071227, end: 20080117

REACTIONS (1)
  - AGRANULOCYTOSIS [None]
